FAERS Safety Report 9343150 (Version 1)
Quarter: 2013Q2

REPORT INFORMATION
  Report Type: Spontaneous
  Country: CN (occurrence: CN)
  Receive Date: 20130611
  Receipt Date: 20130611
  Transmission Date: 20140414
  Serious: Yes (Other)
  Sender: FDA-Public Use
  Company Number: CN-ASTRAZENECA-2013SE41490

PATIENT
  Sex: Male
  Weight: 65 kg

DRUGS (5)
  1. ESOMEPRAZOLE MAGNESIUM [Suspect]
     Indication: PROPHYLAXIS
     Route: 048
     Dates: start: 20120927, end: 20121005
  2. LANSOPRAZOLE [Suspect]
     Indication: PROPHYLAXIS
     Route: 041
     Dates: start: 20120909, end: 20120910
  3. PANTOPRAZOLE SODIUM [Suspect]
     Indication: PROPHYLAXIS
     Route: 041
     Dates: start: 20120924, end: 20120928
  4. DESLORATADINE [Suspect]
     Route: 048
  5. DEXAMETHASONE [Suspect]
     Route: 042

REACTIONS (1)
  - Henoch-Schonlein purpura [Recovering/Resolving]
